FAERS Safety Report 11589307 (Version 6)
Quarter: 2016Q1

REPORT INFORMATION
  Report Type: Spontaneous
  Country: US (occurrence: US)
  Receive Date: 20151002
  Receipt Date: 20160217
  Transmission Date: 20160525
  Serious: Yes (Hospitalization, Other)
  Sender: FDA-Public Use
  Company Number: US-PFIZER INC-2015327992

PATIENT
  Age: 69 Year
  Sex: Male

DRUGS (10)
  1. TAMSULOSIN [Concomitant]
     Active Substance: TAMSULOSIN
     Indication: DYSURIA
     Dosage: 0.4 MG, DAILY
  2. ALLOPURINOL. [Concomitant]
     Active Substance: ALLOPURINOL
     Indication: GOUTY ARTHRITIS
     Dosage: 300 MG, 1X/DAY
  3. DICYCLOMINE [Concomitant]
     Active Substance: DICYCLOMINE HYDROCHLORIDE
     Indication: ABDOMINAL PAIN UPPER
     Dosage: 20 MG, 4X/DAY
  4. DIAZEPAM. [Concomitant]
     Active Substance: DIAZEPAM
     Indication: ANXIETY
  5. LYRICA [Suspect]
     Active Substance: PREGABALIN
     Dosage: ^300 MG X 2^
  6. FENTANYL. [Concomitant]
     Active Substance: FENTANYL
     Indication: PAIN
     Dosage: 25 ?G, LEAVE ON FOR THREE DAYS
     Route: 062
     Dates: start: 201307
  7. DIAZEPAM. [Concomitant]
     Active Substance: DIAZEPAM
     Indication: PANIC ATTACK
     Dosage: 10 MG, 2X/DAY
     Dates: start: 2013
  8. DIAZEPAM. [Concomitant]
     Active Substance: DIAZEPAM
     Indication: MUSCLE RELAXANT THERAPY
  9. LYRICA [Suspect]
     Active Substance: PREGABALIN
     Indication: FIBROMYALGIA
     Dosage: 300 MG, 2X/DAY (ONE CAPSULE TWICE DAILY)
     Route: 048
     Dates: start: 200903
  10. OXYCODONE [Concomitant]
     Active Substance: OXYCODONE
     Indication: PAIN
     Dosage: 10 MG, EVERY 4 TO 6 HOURS
     Dates: start: 201307

REACTIONS (12)
  - Gait disturbance [Not Recovered/Not Resolved]
  - Carpal tunnel syndrome [Unknown]
  - Pre-existing condition improved [Unknown]
  - Joint dislocation [Not Recovered/Not Resolved]
  - Fall [Recovered/Resolved]
  - Insomnia [Not Recovered/Not Resolved]
  - Muscular weakness [Not Recovered/Not Resolved]
  - Back pain [Not Recovered/Not Resolved]
  - Spinal cord injury [Unknown]
  - Staphylococcal infection [Not Recovered/Not Resolved]
  - Arthralgia [Not Recovered/Not Resolved]
  - Therapeutic response unexpected [Unknown]

NARRATIVE: CASE EVENT DATE: 2012
